FAERS Safety Report 8571244-2 (Version None)
Quarter: 2012Q3

REPORT INFORMATION
  Report Type: 
  Country: None (occurrence: None)
  Receive Date: 20120730
  Receipt Date: 20120730
  Transmission Date: 20120928
  Serious: Yes (Hospitalization)
  Sender: FDA-Public Use
  Company Number: None

PATIENT
  Age: 87 Year
  Sex: Male
  Weight: 83.2 kg

DRUGS (1)
  1. ZOLEDRONIC ACID [Suspect]
     Dosage: ML ONCE IV
     Route: 042
     Dates: start: 20120522, end: 20120522

REACTIONS (2)
  - HYPOCALCAEMIA [None]
  - RENAL FAILURE ACUTE [None]
